FAERS Safety Report 16457790 (Version 1)
Quarter: 2019Q2

REPORT INFORMATION
  Report Type: Spontaneous
  Country: US (occurrence: US)
  Receive Date: 20190620
  Receipt Date: 20190620
  Transmission Date: 20190711
  Serious: No
  Sender: FDA-Public Use
  Company Number: US-PFIZER INC-2019263302

PATIENT
  Sex: Male

DRUGS (2)
  1. CLINDAMYCIN HCL [Suspect]
     Active Substance: CLINDAMYCIN HYDROCHLORIDE
     Dosage: UNK
  2. CEPHALEXIN. [Suspect]
     Active Substance: CEPHALEXIN
     Dosage: UNK

REACTIONS (3)
  - Vomiting [Unknown]
  - Drug hypersensitivity [Unknown]
  - Nausea [Unknown]
